FAERS Safety Report 6714300-3 (Version None)
Quarter: 2010Q2

REPORT INFORMATION
  Report Type: 
  Country: None (occurrence: None)
  Receive Date: 20100504
  Receipt Date: 20100422
  Transmission Date: 20101027
  Serious: Yes (Hospitalization, Disabling)
  Sender: FDA-Public Use
  Company Number: OSCN-NO-0905L-0241

PATIENT
  Age: 52 Year
  Sex: Female

DRUGS (16)
  1. OMNISCAN [Suspect]
     Indication: HEPATIC NEOPLASM MALIGNANT
     Dosage: 7 ML, SINGLE DOSE, I.V.
     Route: 042
     Dates: start: 20030924, end: 20030924
  2. OMNISCAN [Suspect]
     Indication: HEPATIC NEOPLASM MALIGNANT
     Dosage: 7 ML, SINGLE DOSE, I.V.
     Route: 042
     Dates: start: 20031126, end: 20031126
  3. OMNISCAN [Suspect]
     Indication: HEPATIC NEOPLASM MALIGNANT
     Dosage: 7 ML, SINGLE DOSE, I.V.
     Route: 042
     Dates: start: 20050316, end: 20050316
  4. OMNISCAN [Suspect]
     Indication: HEPATIC NEOPLASM MALIGNANT
     Dosage: 7 ML, SINGLE DOSE, I.V.
     Route: 042
     Dates: start: 20050803, end: 20050803
  5. OMNISCAN [Suspect]
     Indication: HEPATIC NEOPLASM MALIGNANT
     Dosage: 7 ML, SINGLE DOSE, I.V.
     Route: 042
     Dates: start: 20050909, end: 20050909
  6. OMNISCAN [Suspect]
     Indication: HEPATIC NEOPLASM MALIGNANT
     Dosage: 7 ML, SINGLE DOSE, I.V.
     Route: 042
     Dates: start: 20051221, end: 20051221
  7. MAGNEVIST [Concomitant]
  8. SEVELAMER HYDROCHLORIDE (RENAGEL) [Concomitant]
  9. HEPARIN CALCIUM (CAPROCIN) [Concomitant]
  10. PREDNISOLONE (PREDONINE) [Concomitant]
  11. LEVOTHYROXINE SODIUM (THYRADIN S) [Concomitant]
  12. LOSARTAN POTASSIUM (NU LOTAN) [Concomitant]
  13. LANSOPRAZOLE (TAKEPRON OD) [Concomitant]
  14. GLYCYRRHIZA GLABRA, RHEUM PALMATUM (DAIO-KANZO-TO) [Concomitant]
  15. ENZYMES NOS (TOUGHMAC E) [Concomitant]
  16. SENNOSIDE (PURSENNID) [Concomitant]

REACTIONS (1)
  - NEPHROGENIC SYSTEMIC FIBROSIS [None]
